FAERS Safety Report 16569127 (Version 2)
Quarter: 2019Q3

REPORT INFORMATION
  Report Type: Spontaneous
  Country: US (occurrence: US)
  Receive Date: 20190714
  Receipt Date: 20190730
  Transmission Date: 20191004
  Serious: No
  Sender: FDA-Public Use
  Company Number: US-MERZ NORTH AMERICA, INC.-19MRZ-00289

PATIENT
  Sex: Female

DRUGS (1)
  1. XEOMIN [Suspect]
     Active Substance: INCOBOTULINUMTOXINA
     Indication: VOCAL CORD DISORDER
     Dosage: UNKNOWN

REACTIONS (3)
  - Auditory disorder [Unknown]
  - Vocal cord disorder [Unknown]
  - Dysphonia [Unknown]
